FAERS Safety Report 18321291 (Version 1)
Quarter: 2020Q3

REPORT INFORMATION
  Report Type: Spontaneous
  Country: GB (occurrence: GB)
  Receive Date: 20200928
  Receipt Date: 20200928
  Transmission Date: 20201103
  Serious: Yes (Other)
  Sender: FDA-Public Use
  Company Number: GB-TEVA-2020-GB-1830846

PATIENT
  Age: 32 Year
  Sex: Female
  Weight: 98 kg

DRUGS (3)
  1. FLUOXETINE [Suspect]
     Active Substance: FLUOXETINE HYDROCHLORIDE
     Dosage: UNIT DOSE  : 20 MILLIGRAM
     Route: 048
  2. HYDROXOCOBALAMIN [Concomitant]
     Active Substance: HYDROXOCOBALAMIN
     Dosage: GIVEN FROM PRACTICE STOCK.. 1MG/1ML AMPOULES, UNIT DOSE : 1 DOSAGE FORMS
     Route: 042
     Dates: start: 20200609
  3. ZOPICLONE [Concomitant]
     Active Substance: ZOPICLONE
     Dosage: 3.75 MILLIGRAM DAILY; AT NIGHT TO SLEEP (PLEASE TRY AND MANAGE WITHOUT THESE IF YOU CAN)
     Dates: start: 20200728

REACTIONS (2)
  - Feeling abnormal [Unknown]
  - Hallucination [Recovered/Resolved]

NARRATIVE: CASE EVENT DATE: 20200804
